FAERS Safety Report 5102899-2 (Version None)
Quarter: 2006Q3

REPORT INFORMATION
  Report Type: 
  Country: None (occurrence: None)
  Receive Date: 20060908
  Receipt Date: 20060823
  Transmission Date: 20061208
  Serious: Yes (Other)
  Sender: FDA-Public Use
  Company Number: US-2006-017404

PATIENT
  Age: 59 Year
  Sex: Male
  Weight: 74.8 kg

DRUGS (5)
  1. BETASERON [Suspect]
     Indication: SECONDARY PROGRESSIVE MULTIPLE SCLEROSIS
     Dosage: SEE IMAGE
     Route: 058
     Dates: start: 19940412, end: 20060628
  2. BETASERON [Suspect]
     Indication: SECONDARY PROGRESSIVE MULTIPLE SCLEROSIS
     Dosage: SEE IMAGE
     Route: 058
     Dates: start: 20060702
  3. ZOCOR [Concomitant]
  4. LOTREL (BENAZEPRIL HYDROCHLORIDE, AMLODIPINE) [Concomitant]
  5. ARICEPT [Concomitant]

REACTIONS (8)
  - ASTHENIA [None]
  - CHILLS [None]
  - DRUG DOSE OMISSION [None]
  - FALL [None]
  - INCONTINENCE [None]
  - MOBILITY DECREASED [None]
  - PYREXIA [None]
  - VISUAL ACUITY REDUCED [None]
